FAERS Safety Report 8251368-X (Version None)
Quarter: 2012Q2

REPORT INFORMATION
  Report Type: 
  Country: None (occurrence: None)
  Receive Date: 20120402
  Receipt Date: 20120327
  Transmission Date: 20120825
  Serious: Yes (Other)
  Sender: FDA-Public Use
  Company Number: CN-GLAXOSMITHKLINE-B0792142A

PATIENT
  Age: 32 Year
  Sex: Male

DRUGS (11)
  1. FLUTICASONE PROPIONATE [Suspect]
     Route: 045
     Dates: start: 20110413, end: 20110625
  2. FLUTICASONE PROPIONATE [Suspect]
     Indication: RHINITIS ALLERGIC
     Route: 045
     Dates: start: 20090601, end: 20091001
  3. FLUTICASONE PROPIONATE [Suspect]
     Dosage: 2PUFF TWICE PER DAY
     Route: 055
     Dates: start: 20111001
  4. PREDNISONE TAB [Concomitant]
     Route: 048
     Dates: start: 20110101
  5. VENTOLIN [Suspect]
     Indication: ASTHMA
     Dosage: 1PUFF TWICE PER DAY
     Route: 055
     Dates: start: 20110413, end: 20111001
  6. FLUTICASONE PROPIONATE [Suspect]
     Indication: ASTHMA
     Dosage: 3PUFF TWICE PER DAY
     Route: 055
     Dates: start: 20110413, end: 20111001
  7. KETOTIFEN FUMARATE [Concomitant]
     Indication: RHINITIS ALLERGIC
     Route: 065
     Dates: start: 20090601, end: 20091001
  8. FLUTICASONE PROPIONATE/SALMETEROL [Suspect]
     Indication: ASTHMA
     Route: 055
     Dates: start: 20110101, end: 20110413
  9. VENTOLIN [Suspect]
     Route: 055
     Dates: start: 20111001
  10. DESLORATADINE [Concomitant]
     Indication: RHINITIS ALLERGIC
     Route: 048
     Dates: start: 20090601, end: 20091001
  11. BUDESONIDE + FORMOTEROL FUMARATE DIHYDRATE [Concomitant]
     Indication: ASTHMA
     Dates: start: 20090601, end: 20091001

REACTIONS (4)
  - VISION BLURRED [None]
  - INTRAOCULAR PRESSURE INCREASED [None]
  - CATARACT [None]
  - DYSPHONIA [None]
